FAERS Safety Report 12902051 (Version 1)
Quarter: 2016Q4

REPORT INFORMATION
  Report Type: Spontaneous
  Country: TW (occurrence: TW)
  Receive Date: 20161102
  Receipt Date: 20161102
  Transmission Date: 20170207
  Serious: Yes (Hospitalization)
  Sender: FDA-Public Use
  Company Number: TW-GLENMARK PHARMACEUTICALS INC, USA.-2016GMK024828

PATIENT
  Age: 43 Year
  Sex: Male

DRUGS (2)
  1. LEVOFLOXACIN. [Suspect]
     Active Substance: LEVOFLOXACIN
     Indication: INFLUENZA
     Dosage: UNK
     Route: 065
  2. LEVOFLOXACIN. [Suspect]
     Active Substance: LEVOFLOXACIN
     Indication: ACUTE RESPIRATORY DISTRESS SYNDROME

REACTIONS (2)
  - Condition aggravated [Recovering/Resolving]
  - Acute respiratory distress syndrome [Recovering/Resolving]
